FAERS Safety Report 18615534 (Version 1)
Quarter: 2020Q4

REPORT INFORMATION
  Report Type: Spontaneous
  Country: JP (occurrence: JP)
  Receive Date: 20201215
  Receipt Date: 20201215
  Transmission Date: 20210114
  Serious: Yes (Hospitalization)
  Sender: FDA-Public Use
  Company Number: JP-TEVA-2020-JP-1857899

PATIENT
  Age: 62 Year
  Sex: Male

DRUGS (6)
  1. PREDNISOLONE. [Suspect]
     Active Substance: PREDNISOLONE
     Indication: SCLERODERMA
     Dosage: 20 MILLIGRAM DAILY; STARTING DOSE OF THERAPY
     Route: 065
  2. METHOTREXATE. [Suspect]
     Active Substance: METHOTREXATE
     Indication: RHEUMATOID ARTHRITIS
  3. METHOTREXATE. [Suspect]
     Active Substance: METHOTREXATE
     Indication: SCLERODERMA
     Dosage: 8 MILLIGRAM DAILY; STARTED TEN DAYS BEFORE THE PRESENTATION
     Route: 065
  4. METHOTREXATE. [Suspect]
     Active Substance: METHOTREXATE
     Indication: IMMUNOSUPPRESSANT DRUG THERAPY
  5. PREDNISOLONE. [Suspect]
     Active Substance: PREDNISOLONE
     Indication: IMMUNOSUPPRESSANT DRUG THERAPY
  6. PREDNISOLONE. [Suspect]
     Active Substance: PREDNISOLONE
     Indication: RHEUMATOID ARTHRITIS
     Dosage: 5 MILLIGRAM DAILY; TAPERED FROM 20 MG/DAY TO 5 MG/DAY 11 MONTHS BEFORE
     Route: 065

REACTIONS (4)
  - Streptococcal infection [Recovered/Resolved]
  - Hepatic function abnormal [Recovered/Resolved]
  - Thrombotic microangiopathy [Recovered/Resolved]
  - Renal impairment [Recovered/Resolved]
